FAERS Safety Report 6217908-7 (Version None)
Quarter: 2009Q2

REPORT INFORMATION
  Report Type: 
  Country: None (occurrence: None)
  Receive Date: 20090608
  Receipt Date: 20090601
  Transmission Date: 20091009
  Serious: Yes (Other)
  Sender: FDA-Public Use
  Company Number: GB-ASTRAZENECA-2009GB01261

PATIENT
  Age: 50 Year
  Sex: Female
  Weight: 70 kg

DRUGS (5)
  1. SEROQUEL [Suspect]
     Indication: PSYCHOTIC DISORDER
     Route: 048
     Dates: start: 20070201, end: 20081201
  2. EPILIM CHRONO [Suspect]
     Indication: MANIA
     Route: 048
     Dates: start: 20070201, end: 20081201
  3. EPILIM CHRONO [Suspect]
     Route: 048
     Dates: start: 20081201
  4. CLONAZEPAM [Concomitant]
     Indication: MANIA
     Route: 048
     Dates: start: 20080701
  5. LEVOTHYROXINE SODIUM [Concomitant]
     Indication: HYPOTHYROIDISM
     Route: 048
     Dates: start: 20081201

REACTIONS (2)
  - HYPOTHYROIDISM [None]
  - NEUTROPENIA [None]
